FAERS Safety Report 18758655 (Version 3)
Quarter: 2021Q2

REPORT INFORMATION
  Report Type: Other
  Country: GB (occurrence: GB)
  Receive Date: 20210120
  Receipt Date: 20210407
  Transmission Date: 20210717
  Serious: No
  Sender: FDA-Public Use
  Company Number: GB-LUPIN PHARMACEUTICALS INC.-2021-00493

PATIENT
  Age: 71 Year
  Sex: Male
  Weight: 54.43 kg

DRUGS (3)
  1. BISOPROLOL [Concomitant]
     Active Substance: BISOPROLOL
     Indication: PRODUCT USED FOR UNKNOWN INDICATION
     Dosage: 1 DOSAGE FORM, QD
     Route: 065
  2. SIMVASTATIN TABLETS [Suspect]
     Active Substance: SIMVASTATIN
     Dosage: UNK (DOSE DECREASED)
     Route: 048
  3. SIMVASTATIN TABLETS [Suspect]
     Active Substance: SIMVASTATIN
     Indication: PRODUCT USED FOR UNKNOWN INDICATION
     Dosage: 30 MILLIGRAM, UNK
     Route: 048
     Dates: start: 20181201, end: 20201206

REACTIONS (3)
  - Nightmare [Not Recovered/Not Resolved]
  - Snoring [Unknown]
  - Sleep disorder [Unknown]

NARRATIVE: CASE EVENT DATE: 20181206
